FAERS Safety Report 9162957 (Version 1)
Quarter: 2013Q1

REPORT INFORMATION
  Report Type: Spontaneous
  Country: US (occurrence: None)
  Receive Date: 20130313
  Receipt Date: 20130313
  Transmission Date: 20140127
  Serious: Yes (Life-Threatening, Hospitalization, Other)
  Sender: FDA-Public Use
  Company Number: None

PATIENT
  Age: 63 Year
  Sex: Male
  Weight: 107.9 kg

DRUGS (1)
  1. AZATHIOPRINE [Suspect]
     Indication: GLOMERULONEPHRITIS
     Route: 048
     Dates: start: 20120928, end: 20130204

REACTIONS (2)
  - Pancytopenia [None]
  - Haemodialysis [None]
